FAERS Safety Report 6100947-4 (Version None)
Quarter: 2009Q1

REPORT INFORMATION
  Report Type: 
  Country: None (occurrence: None)
  Receive Date: 20090304
  Receipt Date: 20090224
  Transmission Date: 20090719
  Serious: Yes (Hospitalization)
  Sender: FDA-Public Use
  Company Number: US-JNJFOC-20090106777

PATIENT
  Sex: Female

DRUGS (10)
  1. REMICADE [Suspect]
     Route: 042
  2. REMICADE [Suspect]
     Indication: CROHN'S DISEASE
     Route: 042
  3. ZYRTEC [Concomitant]
     Indication: PREMEDICATION
  4. RIMANTADINE [Concomitant]
     Indication: PREMEDICATION
  5. PREDNISONE [Concomitant]
  6. MULTI-VITAMIN [Concomitant]
  7. FIBERCON [Concomitant]
  8. FLUDROCORTISONE [Concomitant]
  9. IRON SUPPLEMENT [Concomitant]
  10. CALCIUM SUPPLEMENT [Concomitant]

REACTIONS (6)
  - DECREASED APPETITE [None]
  - HYPERSENSITIVITY [None]
  - HYPOTENSION [None]
  - HYPOVOLAEMIA [None]
  - INFUSION RELATED REACTION [None]
  - MYALGIA [None]
